FAERS Safety Report 12114409 (Version 1)
Quarter: 2016Q1

REPORT INFORMATION
  Report Type: Spontaneous
  Country: US (occurrence: None)
  Receive Date: 20160224
  Receipt Date: 20160224
  Transmission Date: 20160526
  Serious: No
  Sender: FDA-Public Use
  Company Number: None

PATIENT
  Age: 68 Year
  Sex: Female

DRUGS (12)
  1. FOLIC ACID. [Concomitant]
     Active Substance: FOLIC ACID
  2. CLIMARA [Concomitant]
     Active Substance: ESTRADIOL
  3. CELEBREX [Concomitant]
     Active Substance: CELECOXIB
  4. ASPIRIN. [Concomitant]
     Active Substance: ASPIRIN
  5. FOSAMAX [Concomitant]
     Active Substance: ALENDRONATE SODIUM
  6. PAQUENIL [Concomitant]
  7. PROZAC [Concomitant]
     Active Substance: FLUOXETINE HYDROCHLORIDE
  8. ENBREL [Suspect]
     Active Substance: ETANERCEPT
     Indication: RHEUMATOID ARTHRITIS
     Route: 058
  9. PERCOCET [Concomitant]
     Active Substance: ACETAMINOPHEN\OXYCODONE HYDROCHLORIDE
  10. VITAMIN D [Concomitant]
     Active Substance: CHOLECALCIFEROL
  11. LEFLUNOMIDE. [Concomitant]
     Active Substance: LEFLUNOMIDE
  12. FUROSEMIDE. [Concomitant]
     Active Substance: FUROSEMIDE

REACTIONS (1)
  - Condition aggravated [None]
